FAERS Safety Report 6026289-3 (Version None)
Quarter: 2008Q4

REPORT INFORMATION
  Report Type: 
  Country: None (occurrence: None)
  Receive Date: 20081230
  Receipt Date: 20081216
  Transmission Date: 20090506
  Serious: Yes (Other)
  Sender: FDA-Public Use
  Company Number: 1-17120472

PATIENT
  Sex: Female

DRUGS (1)
  1. CARBAMAZEPINE [Suspect]
     Dosage: 400 MG PER DAY, ORAL
     Route: 048

REACTIONS (7)
  - ANAEMIA [None]
  - CENTRAL NERVOUS SYSTEM LESION [None]
  - CRYING [None]
  - HALLUCINATION, VISUAL [None]
  - PERSECUTORY DELUSION [None]
  - SCHIZOAFFECTIVE DISORDER [None]
  - SYNCOPE [None]
